FAERS Safety Report 7405322-8 (Version None)
Quarter: 2011Q2

REPORT INFORMATION
  Report Type: 
  Country: None (occurrence: None)
  Receive Date: 20110411
  Receipt Date: 20110330
  Transmission Date: 20111010
  Serious: Yes (Hospitalization)
  Sender: FDA-Public Use
  Company Number: PHFR2010GB00678

PATIENT
  Sex: Male

DRUGS (7)
  1. CLOZARIL [Suspect]
     Dosage: UNK MG, UNK
     Route: 048
     Dates: start: 20110121
  2. CLOZARIL [Suspect]
     Indication: SCHIZOPHRENIA
     Dosage: 250 MG, QD
     Dates: start: 20041112
  3. CLOZARIL [Suspect]
     Dosage: UNK MG, UNK
     Route: 048
     Dates: start: 20041112, end: 20101209
  4. SULPIRIDE [Concomitant]
     Indication: SCHIZOPHRENIA
     Dosage: 400 MG, UNK
     Route: 048
     Dates: start: 20080101
  5. OMEPRAZOLE [Concomitant]
     Dosage: 40 MG, UNK
     Dates: start: 20090101
  6. DOMPERIDONE [Concomitant]
     Dosage: UNK DF, UNK
     Dates: start: 20090101
  7. IRON SUPPLEMENTS [Concomitant]
     Dosage: 400 MG, UNK
     Dates: start: 20090101

REACTIONS (15)
  - HAEMATEMESIS [None]
  - HAEMOGLOBIN DECREASED [None]
  - VOMITING [None]
  - OXYGEN SATURATION DECREASED [None]
  - NAUSEA [None]
  - MALAISE [None]
  - OESOPHAGEAL INJURY [None]
  - ANAEMIA [None]
  - GENERAL PHYSICAL CONDITION ABNORMAL [None]
  - TACHYCARDIA [None]
  - WEIGHT DECREASED [None]
  - GASTROINTESTINAL HAEMORRHAGE [None]
  - ABNORMAL BEHAVIOUR [None]
  - HYPOTENSION [None]
  - HYPOPHAGIA [None]
